FAERS Safety Report 24080203 (Version 1)
Quarter: 2024Q3

REPORT INFORMATION
  Report Type: Report from Study
  Country: US (occurrence: US)
  Receive Date: 20240711
  Receipt Date: 20240711
  Transmission Date: 20241016
  Serious: Yes (Death, Hospitalization, Other)
  Sender: SANDOZ
  Company Number: US-002147023-NVSC2019US081695

PATIENT
  Sex: Female
  Weight: 44.218 kg

DRUGS (4)
  1. TREPROSTINIL [Suspect]
     Active Substance: TREPROSTINIL
     Dosage: (33 NG/KG/MIN), CONTINUOUS (2.5 MG/ML)
     Route: 042
  2. TREPROSTINIL [Suspect]
     Active Substance: TREPROSTINIL
     Indication: Pulmonary arterial hypertension
     Dosage: (26 NG/KG/MIN), CONINUOUS
     Route: 042
     Dates: start: 20190828
  3. ADCIRCA [Concomitant]
     Active Substance: TADALAFIL
     Indication: Pulmonary arterial hypertension
     Dosage: UNK
     Route: 065
  4. AMBRISENTAN [Concomitant]
     Active Substance: AMBRISENTAN
     Indication: Product used for unknown indication
     Dosage: UNK
     Route: 065

REACTIONS (4)
  - Death [Fatal]
  - Pulmonary oedema [Unknown]
  - Respiratory disorder [Unknown]
  - Respiration abnormal [Unknown]
